FAERS Safety Report 12949873 (Version 1)
Quarter: 2016Q4

REPORT INFORMATION
  Report Type: Spontaneous
  Country: US (occurrence: US)
  Receive Date: 20161116
  Receipt Date: 20161116
  Transmission Date: 20170207
  Serious: No
  Sender: FDA-Public Use
  Company Number: US-TOLMAR, INC.-2015US007884

PATIENT
  Sex: Male

DRUGS (3)
  1. ELIGARD [Suspect]
     Active Substance: LEUPROLIDE ACETATE
     Dosage: 7.5 UNK, ONE MONTHS DOSE
     Route: 058
     Dates: start: 20150825
  2. INSULIN [Concomitant]
     Active Substance: INSULIN NOS
  3. ELIGARD [Suspect]
     Active Substance: LEUPROLIDE ACETATE
     Indication: PROSTATE CANCER
     Dosage: 7.5 MG, ONE MONTH DOSE
     Route: 058
     Dates: start: 20150721

REACTIONS (2)
  - Chills [Unknown]
  - Hot flush [Unknown]
